FAERS Safety Report 13019995 (Version 1)
Quarter: 2016Q4

REPORT INFORMATION
  Report Type: Spontaneous
  Country: US (occurrence: US)
  Receive Date: 20161212
  Receipt Date: 20161212
  Transmission Date: 20170207
  Serious: No
  Sender: FDA-Public Use
  Company Number: US-ROCHE-1790391

PATIENT
  Age: 62 Year
  Sex: Female

DRUGS (5)
  1. ACTEMRA [Suspect]
     Active Substance: TOCILIZUMAB
     Indication: RHEUMATOID ARTHRITIS
     Dosage: 162 MG/ 0.9 ML
     Route: 058
  2. FOLIC ACID. [Concomitant]
     Active Substance: FOLIC ACID
  3. XELJANZ [Concomitant]
     Active Substance: TOFACITINIB CITRATE
  4. METHOTREXATE. [Concomitant]
     Active Substance: METHOTREXATE
  5. ZYRTEC [Concomitant]
     Active Substance: CETIRIZINE HYDROCHLORIDE

REACTIONS (5)
  - Inflammation [Unknown]
  - Arthralgia [Unknown]
  - Blood test abnormal [Unknown]
  - Drug ineffective [Unknown]
  - Cough [Unknown]
